FAERS Safety Report 23807871 (Version 2)
Quarter: 2024Q2

REPORT INFORMATION
  Report Type: Report from Study
  Country: CN (occurrence: CN)
  Receive Date: 20240502
  Receipt Date: 20240610
  Transmission Date: 20240716
  Serious: Yes (Other)
  Sender: FDA-Public Use
  Company Number: CN-002147023-NVSC2024CN080213

PATIENT
  Age: 64 Year
  Sex: Male
  Weight: 75 kg

DRUGS (2)
  1. COSENTYX [Suspect]
     Active Substance: SECUKINUMAB
     Indication: Psoriasis
     Dosage: 300 MG/ TIME, QW (10 INJECTIONS)
     Route: 058
     Dates: start: 20230704
  2. COSENTYX [Suspect]
     Active Substance: SECUKINUMAB
     Dosage: 2 INJECTIONS/ TIME, QMO (NEXT FIVE MONTHS)
     Route: 058

REACTIONS (6)
  - Arthralgia [Recovering/Resolving]
  - Pain in extremity [Recovering/Resolving]
  - Pigmentation disorder [Not Recovered/Not Resolved]
  - Peripheral swelling [Recovering/Resolving]
  - Rheumatic disorder [Unknown]
  - Arthropathy [Unknown]

NARRATIVE: CASE EVENT DATE: 20230801
